FAERS Safety Report 15131208 (Version 1)
Quarter: 2018Q3

REPORT INFORMATION
  Report Type: Spontaneous
  Country: US (occurrence: US)
  Receive Date: 20180711
  Receipt Date: 20180711
  Transmission Date: 20181010
  Serious: No
  Sender: FDA-Public Use
  Company Number: US-B.I. PHARMACEUTICALS,INC./RIDGEFIELD-2018-BI-035186

PATIENT
  Age: 44 Year
  Sex: Female

DRUGS (2)
  1. CELEXA [Concomitant]
     Active Substance: CITALOPRAM HYDROBROMIDE
     Indication: DEPRESSION
     Route: 065
  2. JARDIANCE [Suspect]
     Active Substance: EMPAGLIFLOZIN
     Indication: TYPE 2 DIABETES MELLITUS
     Route: 048
     Dates: start: 201707, end: 201806

REACTIONS (6)
  - Fatigue [Unknown]
  - Abnormal loss of weight [Recovered/Resolved]
  - Swelling [Unknown]
  - Pollakiuria [Recovered/Resolved]
  - Abnormal weight gain [Unknown]
  - Food craving [Recovered/Resolved]

NARRATIVE: CASE EVENT DATE: 201707
